FAERS Safety Report 4548893-1 (Version None)
Quarter: 2005Q1

REPORT INFORMATION
  Report Type: 
  Country: None (occurrence: None)
  Receive Date: 20050105
  Receipt Date: 20050105
  Transmission Date: 20050727
  Serious: Yes (Disabling)
  Sender: FDA-Public Use
  Company Number: None

PATIENT
  Age: 46 Year
  Sex: Male
  Weight: 88.4514 kg

DRUGS (1)
  1. ZICAM MATRIXX [Suspect]
     Indication: NASOPHARYNGITIS
     Dosage: 1 DOSE EVERY 4 HOURS NASAL
     Route: 045
     Dates: start: 20030101, end: 20041231

REACTIONS (1)
  - ANOSMIA [None]
